FAERS Safety Report 13348160 (Version 3)
Quarter: 2017Q2

REPORT INFORMATION
  Report Type: Report from Study
  Country: None (occurrence: CA)
  Receive Date: 20170318
  Receipt Date: 20170403
  Transmission Date: 20170830
  Serious: Yes (Hospitalization, Other)
  Sender: FDA-Public Use
  Company Number: CA-ABBVIE-17P-028-1903057-00

PATIENT
  Age: 16 Year
  Sex: Male
  Weight: 48.7 kg

DRUGS (2)
  1. HUMIRA [Suspect]
     Active Substance: ADALIMUMAB
     Indication: CROHN^S DISEASE
     Route: 058
     Dates: start: 20150529, end: 20170221
  2. HUMIRA [Suspect]
     Active Substance: ADALIMUMAB
     Route: 058
     Dates: start: 20170316

REACTIONS (5)
  - Malaise [Not Recovered/Not Resolved]
  - Drug ineffective [Unknown]
  - Gastrointestinal stenosis [Unknown]
  - Incision site complication [Unknown]
  - Abdominal pain [Not Recovered/Not Resolved]

NARRATIVE: CASE EVENT DATE: 201701
